FAERS Safety Report 14405608 (Version 1)
Quarter: 2018Q1

REPORT INFORMATION
  Report Type: Spontaneous
  Country: FR (occurrence: FR)
  Receive Date: 20180118
  Receipt Date: 20180118
  Transmission Date: 20180509
  Serious: Yes (Hospitalization)
  Sender: FDA-Public Use
  Company Number: FR-ROCHE-2055757

PATIENT
  Age: 59 Year
  Sex: Male
  Weight: 95 kg

DRUGS (5)
  1. ACTHIB [Suspect]
     Active Substance: HAEMOPHILUS B CONJUGATE VACCINE (TETANUS TOXOID CONJUGATE)\HAEMOPHILUS INFLUENZAE TYPE B STRAIN 1482 CAPSULAR POLYSACCHARIDE TETANUS TOXOID CONJUGATE ANTIGEN
     Indication: PRODUCT USED FOR UNKNOWN INDICATION
     Route: 030
     Dates: start: 20171108, end: 20171108
  2. CIFLOX (FRANCE) [Suspect]
     Active Substance: CIPROFLOXACIN
     Indication: PROSTATITIS
     Route: 048
     Dates: start: 20171116, end: 20171123
  3. MABTHERA [Suspect]
     Active Substance: RITUXIMAB
     Indication: WALDENSTROM^S MACROGLOBULINAEMIA
     Route: 042
     Dates: start: 20171108, end: 20171108
  4. AUGMENTIN [Suspect]
     Active Substance: AMOXICILLIN\CLAVULANATE POTASSIUM
     Indication: PYREXIA
     Route: 048
     Dates: start: 20171116, end: 20171118
  5. PREVNAR 13 [Suspect]
     Active Substance: PNEUMOCOCCAL 13-VALENT CONJUGATE VACCINE
     Indication: PRODUCT USED FOR UNKNOWN INDICATION
     Route: 030
     Dates: start: 20171106, end: 20171106

REACTIONS (5)
  - Myalgia [Recovered/Resolved]
  - Rash [Recovered/Resolved]
  - Pain in extremity [Recovered/Resolved]
  - Arthralgia [Recovered/Resolved]
  - Pyrexia [Recovered/Resolved]

NARRATIVE: CASE EVENT DATE: 20171118
